FAERS Safety Report 9758620 (Version 1)
Quarter: 2013Q4

REPORT INFORMATION
  Report Type: Spontaneous
  Country: US (occurrence: None)
  Receive Date: 20131216
  Receipt Date: 20131216
  Transmission Date: 20140711
  Serious: Yes (Other)
  Sender: FDA-Public Use
  Company Number: VISP-PR-1208S-0339??

PATIENT
  Age: 54 Year
  Sex: Male

DRUGS (1)
  1. VISIPAQUE [Suspect]
     Dosage: 100 ML, SINGLE DOSE, INTRAVENOUS?

REACTIONS (4)
  - Anaphylactic reaction [None]
  - Swollen tongue [None]
  - Throat tightness [None]
  - Pruritus [None]
